FAERS Safety Report 20652591 (Version 2)
Quarter: 2022Q2

REPORT INFORMATION
  Report Type: Spontaneous
  Country: US (occurrence: US)
  Receive Date: 20220330
  Receipt Date: 20220426
  Transmission Date: 20220720
  Serious: Yes (Other)
  Sender: FDA-Public Use
  Company Number: US-PERRIGO-22US004207

PATIENT
  Age: 90 Year
  Sex: Female
  Weight: 63.492 kg

DRUGS (1)
  1. ERYTHROMYCIN [Suspect]
     Active Substance: ERYTHROMYCIN
     Indication: Eye infection
     Dosage: UNKNOWN (1 STRIP), SINGLE
     Route: 047
     Dates: start: 20220220, end: 20220220

REACTIONS (12)
  - Loss of consciousness [Recovered/Resolved]
  - Dyspnoea [Recovering/Resolving]
  - Hypersensitivity [Recovering/Resolving]
  - Vision blurred [Recovering/Resolving]
  - Aphasia [Recovering/Resolving]
  - Oropharyngeal pain [Recovering/Resolving]
  - Dysgeusia [Recovering/Resolving]
  - Confusional state [Recovering/Resolving]
  - Panic reaction [Recovering/Resolving]
  - Dysphagia [Recovering/Resolving]
  - Oral pain [Recovering/Resolving]
  - Lip dry [Recovering/Resolving]

NARRATIVE: CASE EVENT DATE: 20220221
